FAERS Safety Report 19820127 (Version 1)
Quarter: 2021Q3

REPORT INFORMATION
  Report Type: Spontaneous
  Country: US (occurrence: US)
  Receive Date: 20210913
  Receipt Date: 20210913
  Transmission Date: 20211014
  Serious: Yes (Hospitalization)
  Sender: FDA-Public Use
  Company Number: US-AMRING PHARMACEUTICALS INC.-2021US006174

PATIENT
  Age: 72 Year
  Sex: Female
  Weight: 103 kg

DRUGS (5)
  1. ARSENIC TRIOXIDE INJECTION [Suspect]
     Active Substance: ARSENIC TRIOXIDE
     Indication: ACUTE PROMYELOCYTIC LEUKAEMIA
     Dosage: 0.15 MG/KG
     Route: 042
  2. ALL?TRANS RETINOIC ACID [Suspect]
     Active Substance: TRETINOIN
     Indication: ACUTE PROMYELOCYTIC LEUKAEMIA
     Dosage: 45 MG/M2 SPLIT AS AN ORAL TWICE DAILY DOSE
     Route: 048
  3. DEXAMETHASONE. [Concomitant]
     Active Substance: DEXAMETHASONE
     Dosage: 1 MG, DAILY
     Route: 065
  4. ARSENIC TRIOXIDE INJECTION [Suspect]
     Active Substance: ARSENIC TRIOXIDE
     Dosage: 0.075 MG/KG
     Route: 065
  5. DEXAMETHASONE. [Concomitant]
     Active Substance: DEXAMETHASONE
     Indication: PRODUCT USED FOR UNKNOWN INDICATION
     Dosage: 10 MG TWICE DAILY
     Route: 042

REACTIONS (2)
  - Diarrhoea [Recovered/Resolved]
  - Oedematous pancreatitis [Recovering/Resolving]
